FAERS Safety Report 8066394-3 (Version None)
Quarter: 2012Q1

REPORT INFORMATION
  Report Type: 
  Country: None (occurrence: None)
  Receive Date: 20120117
  Receipt Date: 20120106
  Transmission Date: 20120608
  Serious: Yes (Hospitalization, Other)
  Sender: FDA-Public Use
  Company Number: NSR_00355_2012

PATIENT
  Age: 30 Year
  Sex: Male

DRUGS (1)
  1. ATENOLOL [Suspect]
     Indication: PRODUCT USED FOR UNKNOWN INDICATION
     Dosage: (DF)

REACTIONS (6)
  - NO THERAPEUTIC RESPONSE [None]
  - SELF-MEDICATION [None]
  - BRADYCARDIA [None]
  - INTENTIONAL OVERDOSE [None]
  - CONVULSION [None]
  - HYPOTENSION [None]
